FAERS Safety Report 14667029 (Version 2)
Quarter: 2018Q4

REPORT INFORMATION
  Report Type: Spontaneous
  Country: FR (occurrence: FR)
  Receive Date: 20180322
  Receipt Date: 20181025
  Transmission Date: 20190204
  Serious: Yes (Hospitalization)
  Sender: FDA-Public Use
  Company Number: FR-MERCK KGAA-2044266

PATIENT
  Age: 61 Year
  Sex: Male

DRUGS (3)
  1. EUTHYROX [Suspect]
     Active Substance: LEVOTHYROXINE SODIUM
     Dates: start: 201705
  2. EUTHYROX [Suspect]
     Active Substance: LEVOTHYROXINE SODIUM
     Indication: THYROID HORMONE REPLACEMENT THERAPY
     Dates: start: 201701
  3. EUTHYROX [Suspect]
     Active Substance: LEVOTHYROXINE SODIUM
     Dates: start: 201706

REACTIONS (18)
  - Serum ferritin increased [None]
  - Loss of consciousness [None]
  - Blood thyroid stimulating hormone increased [None]
  - Visual impairment [None]
  - Blood triglycerides increased [None]
  - Irritability [None]
  - Alopecia [None]
  - Blood cholesterol decreased [None]
  - Platelet count decreased [None]
  - Malaise [None]
  - Aspartate aminotransferase increased [None]
  - Weight increased [None]
  - Blood cholesterol increased [None]
  - Gamma-glutamyltransferase increased [None]
  - Alanine aminotransferase increased [None]
  - Headache [None]
  - Blood thyroid stimulating hormone decreased [None]
  - Anxiety [None]

NARRATIVE: CASE EVENT DATE: 201704
